FAERS Safety Report 6467059-1 (Version None)
Quarter: 2009Q4

REPORT INFORMATION
  Report Type: 
  Country: None (occurrence: None)
  Receive Date: 20091127
  Receipt Date: 20091117
  Transmission Date: 20100525
  Serious: Yes (Other)
  Sender: FDA-Public Use
  Company Number: ADR41562009

PATIENT
  Age: 33 Year
  Sex: Female

DRUGS (1)
  1. RISPERIDONE [Suspect]
     Indication: PSYCHOTIC DISORDER
     Dosage: 25MG 2 / 1 WEEKS INTRAMUSCULAR
     Route: 030
     Dates: start: 20060401, end: 20061001

REACTIONS (5)
  - AKATHISIA [None]
  - DYSTONIA [None]
  - HYPERPROLACTINAEMIA [None]
  - PSYCHOTIC DISORDER [None]
  - WEIGHT INCREASED [None]
